FAERS Safety Report 11844028 (Version 1)
Quarter: 2015Q4

REPORT INFORMATION
  Report Type: Spontaneous
  Country: US (occurrence: US)
  Receive Date: 20151217
  Receipt Date: 20151217
  Transmission Date: 20160305
  Serious: Yes (Hospitalization)
  Sender: FDA-Public Use
  Company Number: US-ROCHE-1635822

PATIENT
  Sex: Female
  Weight: 84.44 kg

DRUGS (1)
  1. ESBRIET [Suspect]
     Active Substance: PIRFENIDONE
     Indication: IDIOPATHIC PULMONARY FIBROSIS
     Dosage: TOTAL- 2403 MG DAILY, 3 CAPSULES
     Route: 048
     Dates: start: 20150423

REACTIONS (4)
  - Pneumonia [Unknown]
  - Hypersensitivity [Unknown]
  - Sinusitis [Unknown]
  - Lower respiratory tract infection [Unknown]
